FAERS Safety Report 25866369 (Version 2)
Quarter: 2025Q4

REPORT INFORMATION
  Report Type: Report from Study
  Country: EU (occurrence: EU)
  Receive Date: 20250930
  Receipt Date: 20251025
  Transmission Date: 20260117
  Serious: Yes (Hospitalization, Disabling)
  Sender: TEVA
  Company Number: None

PATIENT
  Age: 53 Year
  Sex: Female

DRUGS (1)
  1. CAPECITABINE [Suspect]
     Active Substance: CAPECITABINE
     Indication: Metastases to liver
     Dosage: CAPECITABINE 500 MG, 2 TABLETS AFTER BREAKFAST AND 2 TABLETS AFTER DINNER. UNKNOWN SPECIALTY
     Route: 048
     Dates: start: 20250616, end: 20250622

REACTIONS (1)
  - Necrotising fasciitis [Recovered/Resolved with Sequelae]

NARRATIVE: CASE EVENT DATE: 20250601
